FAERS Safety Report 7717551-4 (Version None)
Quarter: 2011Q3

REPORT INFORMATION
  Report Type: 
  Country: None (occurrence: None)
  Receive Date: 20110830
  Receipt Date: 20110817
  Transmission Date: 20111222
  Serious: Yes (Congenital Anomaly)
  Sender: FDA-Public Use
  Company Number: GB-UCBSA-037645

PATIENT

DRUGS (3)
  1. TOPIRAMATE [Suspect]
     Route: 064
  2. LAMOTRIGINE [Suspect]
     Route: 064
  3. LEVETIRACETAM [Suspect]
     Route: 064

REACTIONS (2)
  - HAND DEFORMITY [None]
  - MATERNAL EXPOSURE DURING PREGNANCY [None]
